FAERS Safety Report 18003521 (Version 5)
Quarter: 2024Q4

REPORT INFORMATION
  Report Type: Spontaneous
  Country: JP (occurrence: JP)
  Receive Date: 20200710
  Receipt Date: 20241130
  Transmission Date: 20250114
  Serious: Yes (Hospitalization, Other)
  Sender: CELLTRION
  Company Number: JP-CELLTRION INC.-2020JP023987

PATIENT

DRUGS (10)
  1. INFLIXIMAB [Suspect]
     Active Substance: INFLIXIMAB
     Indication: Colitis ulcerative
     Dosage: 315 MG (WEIGHT: 63 KG)
     Route: 041
     Dates: start: 20181127, end: 20181127
  2. INFLIXIMAB [Suspect]
     Active Substance: INFLIXIMAB
     Dosage: 325 MG (WEIGHT: 65 KG)
     Route: 041
     Dates: start: 20190122, end: 20190122
  3. INFLIXIMAB [Suspect]
     Active Substance: INFLIXIMAB
     Dosage: 320 MG (WEIGHT: 64 KG)
     Route: 041
     Dates: start: 20190319, end: 20190319
  4. INFLIXIMAB [Suspect]
     Active Substance: INFLIXIMAB
     Dosage: 325 MG (WEIGHT: 65 KG)
     Route: 041
     Dates: start: 20190509, end: 20190509
  5. INFLIXIMAB [Suspect]
     Active Substance: INFLIXIMAB
     Dosage: 320 MG (WEIGHT:63.5 KG)
     Route: 041
     Dates: start: 20191218, end: 20191218
  6. INFLIXIMAB [Suspect]
     Active Substance: INFLIXIMAB
     Dosage: 300 MG (WEIGHT: 61 KG)
     Route: 041
     Dates: start: 20201126, end: 20201126
  7. INFLIXIMAB [Suspect]
     Active Substance: INFLIXIMAB
     Dosage: 315 MILLIGRAM (WEIGHT: 63 KG)
     Route: 041
     Dates: start: 20211223, end: 20211223
  8. INFLIXIMAB [Suspect]
     Active Substance: INFLIXIMAB
     Dosage: 320 MG (WEIGHT: 63.5 KG)
     Route: 041
     Dates: start: 20221220, end: 20221220
  9. INFLIXIMAB [Suspect]
     Active Substance: INFLIXIMAB
     Dosage: 310 MG (WEIGHT: 62.1 KG)
     Route: 041
     Dates: start: 20231114, end: 20231114
  10. MESALAMINE [Concomitant]
     Active Substance: MESALAMINE
     Dosage: 3200 MILLIGRAM/DAY
     Route: 048

REACTIONS (15)
  - Sinus node dysfunction [Recovered/Resolved]
  - Cardiac pacemaker insertion [Recovered/Resolved]
  - Hyperkalaemia [Unknown]
  - Cerebrovascular stenosis [Unknown]
  - Carotid artery occlusion [Unknown]
  - Angina pectoris [Recovered/Resolved]
  - Cerebral infarction [Unknown]
  - Cat scratch disease [Recovered/Resolved]
  - Upper respiratory tract infection [Recovered/Resolved]
  - Constipation [Recovered/Resolved]
  - Pyrexia [Unknown]
  - Overdose [Unknown]
  - Underdose [Unknown]
  - Intentional product use issue [Unknown]
  - Intentional product use issue [Unknown]

NARRATIVE: CASE EVENT DATE: 20190512
